FAERS Safety Report 20815468 (Version 1)
Quarter: 2022Q2

REPORT INFORMATION
  Report Type: Spontaneous
  Country: US (occurrence: None)
  Receive Date: 20220511
  Receipt Date: 20220511
  Transmission Date: 20220721
  Serious: No
  Sender: FDA-Public Use
  Company Number: None

PATIENT
  Age: 78 Year
  Sex: Male
  Weight: 86.18 kg

DRUGS (25)
  1. ABIRATERONE [Suspect]
     Active Substance: ABIRATERONE
     Indication: Prostate cancer
     Dosage: FREQUENCY : DAILY;?
     Route: 048
     Dates: start: 20220329
  2. Amiodarone HCI [Concomitant]
  3. ARICEPT [Concomitant]
     Active Substance: DONEPEZIL HYDROCHLORIDE
  4. ASCORBIC ACID [Concomitant]
     Active Substance: ASCORBIC ACID
  5. ATORVASTATIN [Concomitant]
     Active Substance: ATORVASTATIN
  6. CALCIUM [Concomitant]
     Active Substance: CALCIUM
  7. VITAMIN B12 [Concomitant]
     Active Substance: CYANOCOBALAMIN
  8. CALCIUM CITRATE [Concomitant]
     Active Substance: CALCIUM CITRATE
  9. Calcitriol Cholecalciferol [Concomitant]
  10. COUMADIN [Concomitant]
     Active Substance: WARFARIN SODIUM
  11. GABAPENTIN [Concomitant]
     Active Substance: GABAPENTIN
  12. IMIPRAMINE [Concomitant]
  13. LEVOTHYROXINE [Concomitant]
     Active Substance: LEVOTHYROXINE
  14. METAMUCIL [Concomitant]
     Active Substance: PLANTAGO SEED
  15. METOPROLOL SUCCINATE [Concomitant]
     Active Substance: METOPROLOL SUCCINATE
  16. MIRABEGRON ER NATURAL [Concomitant]
  17. VITAMIN E [Concomitant]
  18. NITROGLYCERIN [Concomitant]
     Active Substance: NITROGLYCERIN
  19. PANTOPRAZOLE SODIUM [Concomitant]
     Active Substance: PANTOPRAZOLE SODIUM
  20. PREDNISONE [Concomitant]
     Active Substance: PREDNISONE
  21. PROFERRIN-FORTE [Concomitant]
  22. PROLIA [Concomitant]
     Active Substance: DENOSUMAB
  23. REQUIP [Concomitant]
     Active Substance: ROPINIROLE HYDROCHLORIDE
  24. RETACRIT [Concomitant]
     Active Substance: EPOETIN ALFA-EPBX
  25. VALACYCLOVIR [Concomitant]
     Active Substance: VALACYCLOVIR HYDROCHLORIDE

REACTIONS (1)
  - Drug ineffective [None]
